FAERS Safety Report 6233185-5 (Version None)
Quarter: 2009Q2

REPORT INFORMATION
  Report Type: 
  Country: None (occurrence: None)
  Receive Date: 20090617
  Receipt Date: 20090608
  Transmission Date: 20091009
  Serious: Yes (Other)
  Sender: FDA-Public Use
  Company Number: US-BAYER-200922927NA

PATIENT
  Age: 55 Year
  Sex: Female
  Weight: 68 kg

DRUGS (3)
  1. ULTRAVIST 370 [Suspect]
     Indication: COMPUTERISED TOMOGRAM THORAX
     Dosage: TOTAL DAILY DOSE: 100 ML  UNIT DOSE: 100 ML
     Route: 042
     Dates: start: 20090530, end: 20090530
  2. ATENOLOL [Concomitant]
  3. LORAZEPAM [Concomitant]

REACTIONS (5)
  - LIP SWELLING [None]
  - NAUSEA [None]
  - OXYGEN SATURATION DECREASED [None]
  - PRURITUS [None]
  - URTICARIA [None]
